FAERS Safety Report 25577918 (Version 1)
Quarter: 2025Q3

REPORT INFORMATION
  Report Type: Spontaneous
  Country: US (occurrence: US)
  Receive Date: 20250718
  Receipt Date: 20250718
  Transmission Date: 20251021
  Serious: No
  Sender: NOVO NORDISK
  Company Number: US-NOVOPROD-1431042

PATIENT
  Age: 65 Year
  Sex: Female

DRUGS (6)
  1. RYBELSUS [Suspect]
     Active Substance: SEMAGLUTIDE
     Indication: Product used for unknown indication
     Dates: start: 20240612
  2. RYBELSUS [Suspect]
     Active Substance: SEMAGLUTIDE
     Dates: start: 20240712
  3. RYBELSUS [Suspect]
     Active Substance: SEMAGLUTIDE
     Dates: start: 20240816, end: 20250214
  4. RYBELSUS [Suspect]
     Active Substance: SEMAGLUTIDE
     Dates: start: 20250226, end: 20250227
  5. RYBELSUS [Suspect]
     Active Substance: SEMAGLUTIDE
     Dates: start: 20250228, end: 20250228
  6. JANUVIA [Concomitant]
     Active Substance: SITAGLIPTIN PHOSPHATE
     Indication: Product used for unknown indication
     Dosage: 100 MG, QD
     Dates: end: 20250226

REACTIONS (1)
  - Allodynia [Recovered/Resolved]
